FAERS Safety Report 19211085 (Version 1)
Quarter: 2021Q2

REPORT INFORMATION
  Report Type: Spontaneous
  Country: US (occurrence: US)
  Receive Date: 20210504
  Receipt Date: 20210504
  Transmission Date: 20210717
  Serious: Yes (Other)
  Sender: FDA-Public Use
  Company Number: None

PATIENT
  Age: 18 Year
  Sex: Female
  Weight: 54 kg

DRUGS (10)
  1. KETOCONAZOLE SHAMPOO [Concomitant]
     Active Substance: KETOCONAZOLE
  2. ACETAMINOPHEN. [Concomitant]
     Active Substance: ACETAMINOPHEN
  3. IBUPROFEN. [Concomitant]
     Active Substance: IBUPROFEN
  4. 90 TAB MONTEKULAST 10MG [Suspect]
     Active Substance: MONTELUKAST SODIUM
     Indication: HYPERSENSITIVITY
  5. LEVONOR/ETHI ESTRADIOL [Concomitant]
  6. CLOBETASOL SHAMPOO [Concomitant]
  7. PRAZOSIN. [Concomitant]
     Active Substance: PRAZOSIN
  8. DULOXETINE. [Concomitant]
     Active Substance: DULOXETINE
  9. ALBUTEROL. [Concomitant]
     Active Substance: ALBUTEROL
  10. 90 TAB MONTEKULAST 10MG [Suspect]
     Active Substance: MONTELUKAST SODIUM
     Indication: ASTHMA

REACTIONS (13)
  - Tremor [None]
  - Dysphemia [None]
  - Abnormal dreams [None]
  - Disorientation [None]
  - Suicidal ideation [None]
  - Mental disorder [None]
  - Disturbance in attention [None]
  - Aggression [None]
  - Irritability [None]
  - Hypersomnia [None]
  - Somnambulism [None]
  - Depression [None]
  - Nervous system disorder [None]
